FAERS Safety Report 22114403 (Version 2)
Quarter: 2023Q4

REPORT INFORMATION
  Report Type: Spontaneous
  Country: CA (occurrence: CA)
  Receive Date: 20230320
  Receipt Date: 20231020
  Transmission Date: 20240109
  Serious: Yes (Hospitalization)
  Sender: FDA-Public Use
  Company Number: None

PATIENT
  Age: 5 Year
  Sex: Female
  Weight: 20 kg

DRUGS (23)
  1. METHOTREXATE [Suspect]
     Active Substance: METHOTREXATE
     Indication: B precursor type acute leukaemia
     Route: 030
  2. CYTARABINE [Suspect]
     Active Substance: CYTARABINE
     Indication: B precursor type acute leukaemia
     Route: 037
  3. DEXAMETHASONE [Suspect]
     Active Substance: DEXAMETHASONE
     Indication: B precursor type acute leukaemia
     Dosage: LIQUID INTRA- ARTICULAR
  4. HYDROCORTISONE [Suspect]
     Active Substance: HYDROCORTISONE
     Indication: B precursor type acute leukaemia
     Dosage: POWDER FOR SOLUTION INTRAMUSCULAR
     Route: 037
  5. MERCAPTOPURINE [Suspect]
     Active Substance: MERCAPTOPURINE
     Indication: B precursor type acute leukaemia
  6. PEGASPARGASE [Suspect]
     Active Substance: PEGASPARGASE
     Indication: B precursor type acute leukaemia
     Dosage: DOSE: 1950.0 UNITS
     Route: 042
  7. VINCRISTINE SULFATE [Suspect]
     Active Substance: VINCRISTINE SULFATE
     Indication: B precursor type acute leukaemia
  8. ACETAMINOPHEN [Concomitant]
     Active Substance: ACETAMINOPHEN
  9. DIMENHYDRINATE [Concomitant]
     Active Substance: DIMENHYDRINATE
     Indication: B precursor type acute leukaemia
  10. DIPHENHYDRAMINE [Concomitant]
     Active Substance: DIPHENHYDRAMINE
  11. FAMOTIDINE [Concomitant]
     Active Substance: FAMOTIDINE
  12. FENOFIBRATE [Concomitant]
     Active Substance: FENOFIBRATE
  13. GABAPENTIN [Concomitant]
     Active Substance: GABAPENTIN
  14. LORAZEPAM [Concomitant]
     Active Substance: LORAZEPAM
  15. MELATONIN [Concomitant]
     Active Substance: MELATONIN
     Dosage: 10 MG, DOUBLE ACTION
  16. ONDANSETRON [Concomitant]
     Active Substance: ONDANSETRON
  17. SULFAMETHOXAZOLE\TRIMETHOPRIM [Concomitant]
     Active Substance: SULFAMETHOXAZOLE\TRIMETHOPRIM
  18. CLOTRIMAZOLE [Concomitant]
     Active Substance: CLOTRIMAZOLE
  19. LANSOPRAZOLE [Concomitant]
     Active Substance: LANSOPRAZOLE
     Dosage: CAPSULE DELAYED RELEASE
  20. NEURONTIN [Concomitant]
     Active Substance: GABAPENTIN
  21. POLYETHYLENE GLYCOL [Concomitant]
     Active Substance: POLYETHYLENE GLYCOL
  22. VITAMIN D [Concomitant]
     Active Substance: VITAMIN D NOS
  23. METHOTREXATE [Suspect]
     Active Substance: METHOTREXATE
     Indication: B precursor type acute leukaemia

REACTIONS (1)
  - Febrile neutropenia [Recovered/Resolved]
